FAERS Safety Report 22335740 (Version 1)
Quarter: 2023Q2

REPORT INFORMATION
  Report Type: Other
  Country: KR (occurrence: KR)
  Receive Date: 20230518
  Receipt Date: 20230518
  Transmission Date: 20230722
  Serious: Yes (Other)
  Sender: FDA-Public Use
  Company Number: KR-002147023-NVSC2023KR110448

PATIENT
  Age: 76 Year

DRUGS (2)
  1. LUCENTIS [Suspect]
     Active Substance: RANIBIZUMAB
     Indication: Neovascular age-related macular degeneration
     Dosage: UNK, QMO (THREE MONTHLY)
     Route: 065
  2. AFLIBERCEPT [Suspect]
     Active Substance: AFLIBERCEPT
     Indication: Neovascular age-related macular degeneration
     Dosage: UNK (THREE BIMONTHLY)
     Route: 065

REACTIONS (3)
  - Neovascular age-related macular degeneration [Unknown]
  - Condition aggravated [Unknown]
  - Drug ineffective [Unknown]
